FAERS Safety Report 10064628 (Version 1)
Quarter: 2014Q2

REPORT INFORMATION
  Report Type: Spontaneous
  Country: SE (occurrence: SE)
  Receive Date: 20140408
  Receipt Date: 20140408
  Transmission Date: 20141212
  Serious: Yes (Other)
  Sender: FDA-Public Use
  Company Number: SE-BAUSCH-BL-2014-001620

PATIENT
  Sex: Female

DRUGS (2)
  1. MINIMS ATROPINE SULPHATE 1% W/V EYE DROPS, SOLUTION [Suspect]
     Indication: MUSCULAR WEAKNESS
     Route: 048
  2. MINIMS ATROPINE SULPHATE 1% W/V EYE DROPS, SOLUTION [Suspect]
     Indication: SALIVARY HYPERSECRETION

REACTIONS (13)
  - Hypersensitivity [Unknown]
  - Dizziness [Unknown]
  - Diplopia [Unknown]
  - Amnesia [Unknown]
  - Tremor [Unknown]
  - Loss of consciousness [Unknown]
  - Hallucination [Unknown]
  - Incorrect route of drug administration [Unknown]
  - Off label use [Unknown]
  - Limb discomfort [Unknown]
  - Muscular weakness [Unknown]
  - Asthenia [Unknown]
  - Gait disturbance [Unknown]
